FAERS Safety Report 24100153 (Version 1)
Quarter: 2024Q3

REPORT INFORMATION
  Report Type: Report from Study
  Country: US (occurrence: US)
  Receive Date: 20240717
  Receipt Date: 20240717
  Transmission Date: 20241017
  Serious: Yes (Hospitalization, Other)
  Sender: ABBVIE
  Company Number: US-ABBVIE-5824261

PATIENT
  Age: 76 Year
  Sex: Female
  Weight: 48 kg

DRUGS (3)
  1. HUMIRA [Suspect]
     Active Substance: ADALIMUMAB
     Indication: Polychondritis
     Dosage: CITRATE FREE, FORM STRENGTH-40 MG
     Route: 058
     Dates: start: 2023, end: 20240406
  2. METHOTREXATE [Concomitant]
     Active Substance: METHOTREXATE
     Indication: Polychondritis
  3. PREMARIN [Concomitant]
     Active Substance: ESTROGENS, CONJUGATED
     Indication: Hot flush

REACTIONS (8)
  - Skin wound [Recovered/Resolved]
  - Cellulitis [Recovering/Resolving]
  - Arthropod bite [Recovered/Resolved]
  - Off label use [Not Recovered/Not Resolved]
  - Musculoskeletal disorder [Recovering/Resolving]
  - Fall [Recovered/Resolved]
  - Wound complication [Unknown]
  - Skin discolouration [Unknown]

NARRATIVE: CASE EVENT DATE: 20240401
